FAERS Safety Report 7669981-7 (Version None)
Quarter: 2011Q3

REPORT INFORMATION
  Report Type: 
  Country: None (occurrence: None)
  Receive Date: 20110808
  Receipt Date: 20110804
  Transmission Date: 20111222
  Serious: Yes (Other)
  Sender: FDA-Public Use
  Company Number: US-AMGEN-USASP2011019833

PATIENT
  Age: 29 Year
  Sex: Female

DRUGS (3)
  1. NPLATE [Suspect]
     Indication: IDIOPATHIC THROMBOCYTOPENIC PURPURA
     Dosage: 1 A?G/KG, UNK
     Dates: start: 20100224, end: 20100406
  2. IVIGLOB-EX [Concomitant]
  3. CORTICOSTEROIDS [Concomitant]

REACTIONS (1)
  - THROMBOCYTOPENIA [None]
